FAERS Safety Report 16766697 (Version 2)
Quarter: 2019Q4

REPORT INFORMATION
  Report Type: Spontaneous
  Country: US (occurrence: US)
  Receive Date: 20190903
  Receipt Date: 20191118
  Transmission Date: 20200122
  Serious: No
  Sender: FDA-Public Use
  Company Number: US-PFIZER INC-2019373557

PATIENT
  Age: 67 Year
  Sex: Female
  Weight: 91.16 kg

DRUGS (6)
  1. PREDNISONE. [Suspect]
     Active Substance: PREDNISONE
     Indication: DIZZINESS
     Dosage: 10 MG, 3X/DAY
     Dates: start: 20180813
  2. PREDNISONE. [Suspect]
     Active Substance: PREDNISONE
     Dosage: 10 MG, 2X/DAY
  3. KETOROLAC TROMETHAMINE. [Suspect]
     Active Substance: KETOROLAC TROMETHAMINE
     Indication: DIZZINESS
     Dosage: 10 MG, 4X/DAY
     Dates: start: 20171227
  4. PREDNISONE. [Suspect]
     Active Substance: PREDNISONE
     Dosage: 0.05 MG, 1X/DAY
  5. KETOROLAC TROMETHAMINE. [Suspect]
     Active Substance: KETOROLAC TROMETHAMINE
     Dosage: 10 MG, 4X/DAY
     Dates: start: 20180126
  6. PREDNISONE. [Suspect]
     Active Substance: PREDNISONE
     Dosage: 10 MG, 1X/DAY

REACTIONS (4)
  - Heart rate increased [Unknown]
  - Drug ineffective for unapproved indication [Not Recovered/Not Resolved]
  - Condition aggravated [Not Recovered/Not Resolved]
  - Off label use [Unknown]

NARRATIVE: CASE EVENT DATE: 20171227
